FAERS Safety Report 21633263 (Version 1)
Quarter: 2022Q4

REPORT INFORMATION
  Report Type: Spontaneous
  Country: US (occurrence: None)
  Receive Date: 20221122
  Receipt Date: 20221122
  Transmission Date: 20230112
  Serious: No
  Sender: FDA-Public Use
  Company Number: None

PATIENT
  Sex: Male

DRUGS (1)
  1. DALFAMPRIDINE [Suspect]
     Active Substance: DALFAMPRIDINE
     Indication: Multiple sclerosis
     Dosage: OTHER FREQUENCY : EVERY12HOURS;?
     Route: 048
     Dates: start: 202210

REACTIONS (3)
  - Drug ineffective [None]
  - Dizziness [None]
  - Mental disorder [None]
